FAERS Safety Report 25930323 (Version 1)
Quarter: 2025Q4

REPORT INFORMATION
  Report Type: Spontaneous
  Country: US (occurrence: US)
  Receive Date: 20251016
  Receipt Date: 20251016
  Transmission Date: 20260117
  Serious: Yes (Other)
  Sender: CHATTEM
  Company Number: US-OPELLA-2025OHG029960

PATIENT
  Sex: Male

DRUGS (1)
  1. DULCOLAX CHEWY BITES ASSORTED FRUITS [Suspect]
     Active Substance: MAGNESIUM HYDROXIDE
     Indication: Product used for unknown indication
     Route: 065
     Dates: start: 20251008

REACTIONS (1)
  - Foreign body in throat [Unknown]

NARRATIVE: CASE EVENT DATE: 20251008
